FAERS Safety Report 7001033-1 (Version None)
Quarter: 2010Q3

REPORT INFORMATION
  Report Type: 
  Country: None (occurrence: None)
  Receive Date: 20100920
  Receipt Date: 20070926
  Transmission Date: 20110219
  Serious: Yes (Other)
  Sender: FDA-Public Use
  Company Number: US-ASTRAZENECA-2006UW22396

PATIENT
  Age: 45 Year
  Sex: Female
  Weight: 147 kg

DRUGS (27)
  1. SEROQUEL [Suspect]
     Indication: SCHIZOPHRENIA
     Route: 048
     Dates: start: 20020101, end: 20030101
  2. SEROQUEL [Suspect]
     Indication: BIPOLAR DISORDER
     Route: 048
     Dates: start: 20020101, end: 20030101
  3. SEROQUEL [Suspect]
     Indication: DEPRESSION
     Route: 048
     Dates: start: 20020101, end: 20030101
  4. SEROQUEL [Suspect]
     Indication: INSOMNIA
     Route: 048
     Dates: start: 20020101, end: 20030101
  5. SEROQUEL [Suspect]
     Dosage: 25-100 MG
     Route: 048
     Dates: start: 20030618
  6. SEROQUEL [Suspect]
     Dosage: 25-100 MG
     Route: 048
     Dates: start: 20030618
  7. SEROQUEL [Suspect]
     Dosage: 25-100 MG
     Route: 048
     Dates: start: 20030618
  8. SEROQUEL [Suspect]
     Dosage: 25-100 MG
     Route: 048
     Dates: start: 20030618
  9. ABILIFY [Concomitant]
     Dates: start: 20030101, end: 20050101
  10. ABILIFY [Concomitant]
     Dates: start: 20050901
  11. TRAZODONE HCL [Concomitant]
     Indication: SLEEP DISORDER
     Dosage: 50-200 MG
     Dates: start: 20030519
  12. LIPITOR [Concomitant]
     Route: 048
     Dates: start: 20030519
  13. TOPAMAX [Concomitant]
     Dosage: 25-100 MG
     Dates: start: 20030618
  14. GLUCOVANCE [Concomitant]
     Indication: DIABETES MELLITUS
     Dosage: 500-1000 MG, 5/500 MG TWO TIMES A DAY
     Route: 048
     Dates: start: 20030618
  15. NORVASC [Concomitant]
     Indication: BLOOD PRESSURE
     Route: 048
     Dates: start: 20030519
  16. ACCUPRIL [Concomitant]
     Indication: BLOOD PRESSURE
     Route: 048
     Dates: start: 20030519
  17. LEXAPRO [Concomitant]
     Indication: IRRITABILITY
     Dosage: 10-20 MG
     Dates: start: 20030618
  18. ASPIRIN [Concomitant]
     Route: 048
     Dates: start: 20030519
  19. ZOLOFT [Concomitant]
     Dosage: 25-100 MG
     Route: 048
     Dates: start: 20030519
  20. MAXZIDE [Concomitant]
     Dosage: 75/50 DAILY
     Route: 048
     Dates: start: 20030519
  21. METFORMIN [Concomitant]
     Dosage: 500-1000 MG
     Route: 048
     Dates: start: 20050901
  22. LISINOPRIL [Concomitant]
     Dates: start: 20050901
  23. METOPROLOL [Concomitant]
     Dates: start: 20050901
  24. HYDROCHLOROTHIAZIDE [Concomitant]
     Dates: start: 20050901
  25. LANTUS [Concomitant]
     Dosage: 75 UNITS AT NIGHT
     Dates: start: 20050901
  26. ZOCOR [Concomitant]
     Dates: start: 20050901
  27. PHENERGAN [Concomitant]
     Dates: start: 20060110

REACTIONS (7)
  - BLOOD PRESSURE INADEQUATELY CONTROLLED [None]
  - DIABETES MELLITUS [None]
  - DIABETES MELLITUS INADEQUATE CONTROL [None]
  - ESSENTIAL HYPERTENSION [None]
  - HYPERTENSION [None]
  - SUICIDAL IDEATION [None]
  - SUICIDE ATTEMPT [None]
